FAERS Safety Report 6695255-7 (Version None)
Quarter: 2010Q2

REPORT INFORMATION
  Report Type: 
  Country: None (occurrence: None)
  Receive Date: 20100423
  Receipt Date: 20100412
  Transmission Date: 20101027
  Serious: Yes (Death)
  Sender: FDA-Public Use
  Company Number: US-ELI_LILLY_AND_COMPANY-US201003000635

PATIENT
  Sex: Female

DRUGS (20)
  1. FORTEO [Suspect]
     Dosage: UNK, UNKNOWN
     Route: 065
  2. ISOSORBIDE DINITRATE [Concomitant]
     Dosage: 60 MG, DAILY (1/D)
     Route: 048
  3. TOPROL-XL [Concomitant]
     Dosage: 100 MG, DAILY (1/D)
     Route: 048
  4. PLAVIX [Concomitant]
     Dosage: 75 MG, DAILY (1/D)
     Route: 048
  5. FUROSEMIDE [Concomitant]
     Dosage: 20 MG, QOD
     Route: 048
  6. POTASSIUM [Concomitant]
     Dosage: 10 MG, QOD
     Route: 048
  7. SYNTHROID [Concomitant]
     Dosage: 25 UG, EACH MORNING
     Route: 048
  8. LEXAPRO [Concomitant]
     Dosage: 10 MG, DAILY (1/D)
     Route: 048
  9. PEPCID AC [Concomitant]
     Dosage: 20 MG, 2/D
     Route: 048
  10. CALCIUM W/VITAMIN D /00188401/ [Concomitant]
     Dosage: 600 MG, 2/D
     Route: 048
  11. MULTI-VITAMIN [Concomitant]
     Dosage: UNK, DAILY (1/D)
     Route: 048
  12. IRON [Concomitant]
     Dosage: 325 MG, 2/D
     Route: 048
  13. ZETIA [Concomitant]
     Dosage: 10 MG, EACH EVENING
     Route: 048
  14. SINGULAIR [Concomitant]
     Dosage: 10 MG, EACH EVENING
     Route: 048
  15. ZYRTEC [Concomitant]
     Dosage: 10 MG, EACH EVENING
     Route: 048
  16. FOSAMAX [Concomitant]
     Dosage: 70 MG, WEEKLY (1/W)
     Route: 048
  17. CRESTOR [Concomitant]
     Dosage: 10 MG, EACH EVENING
     Route: 048
  18. FISH OIL [Concomitant]
     Dosage: UNK, EACH MORNING
     Route: 048
  19. AMBIEN [Concomitant]
     Dosage: 5 MG, AS NEEDED
     Route: 048
  20. OXYCODONE HCL [Concomitant]
     Dosage: UNK D/F, AS NEEDED

REACTIONS (1)
  - DEATH [None]
